FAERS Safety Report 17995208 (Version 5)
Quarter: 2020Q4

REPORT INFORMATION
  Report Type: Spontaneous
  Country: JP (occurrence: JP)
  Receive Date: 20200708
  Receipt Date: 20201007
  Transmission Date: 20210113
  Serious: Yes (Life-Threatening, Hospitalization)
  Sender: FDA-Public Use
  Company Number: JP-EISAI MEDICAL RESEARCH-EC-2020-076882

PATIENT
  Sex: Female
  Weight: 65 kg

DRUGS (6)
  1. CLINDAMYCIN. [Concomitant]
     Active Substance: CLINDAMYCIN
     Indication: SKIN ULCER
     Route: 065
     Dates: start: 20200501, end: 20200519
  2. CEFAMEZIN [Concomitant]
     Active Substance: CEFAZOLIN
     Indication: SKIN ULCER
     Dosage: DOSAGE AND FREQUENCY UNKNOWN
     Dates: start: 20200427, end: 20200427
  3. MINOCYCLINE HYDROCHLORIDE. [Concomitant]
     Active Substance: MINOCYCLINE HYDROCHLORIDE
     Indication: SKIN ULCER
     Dates: start: 20200513, end: 20200519
  4. LENVIMA [Suspect]
     Active Substance: LENVATINIB
     Indication: THYROID CANCER
     Route: 048
     Dates: start: 20191206, end: 20200604
  5. PIPERACILLIN NA [Concomitant]
     Indication: SKIN ULCER
     Route: 065
     Dates: start: 20200416, end: 20200416
  6. PIPERACILLIN NA [Concomitant]
     Route: 065
     Dates: start: 20200417, end: 20200422

REACTIONS (4)
  - Cholecystitis [Recovered/Resolved]
  - Skin ulcer [Recovered/Resolved]
  - Hyperbilirubinaemia [Recovered/Resolved]
  - Hepatic failure [Recovered/Resolved]

NARRATIVE: CASE EVENT DATE: 20200416
